FAERS Safety Report 10445783 (Version 3)
Quarter: 2015Q3

REPORT INFORMATION
  Report Type: Spontaneous
  Country: US (occurrence: US)
  Receive Date: 20140910
  Receipt Date: 20150923
  Transmission Date: 20151125
  Serious: Yes (Other)
  Sender: FDA-Public Use
  Company Number: US-WATSON-2014-19494

PATIENT
  Sex: Female
  Weight: 77 kg

DRUGS (2)
  1. BUPROPION HYDROCHLORIDE XL [Suspect]
     Active Substance: BUPROPION HYDROCHLORIDE
     Indication: MAJOR DEPRESSION
     Dosage: 150 MG, DAILY
     Route: 048
     Dates: start: 2012
  2. BUPROPION HYDROCHLORIDE (WATSON LABORATORIES) [Suspect]
     Active Substance: BUPROPION HYDROCHLORIDE
     Indication: DEPRESSION
     Dosage: 300 MG, DAILY
     Route: 048
     Dates: start: 2012

REACTIONS (3)
  - Depression [Not Recovered/Not Resolved]
  - Suicidal ideation [Not Recovered/Not Resolved]
  - Drug ineffective [Recovered/Resolved]
